FAERS Safety Report 10358267 (Version 2)
Quarter: 2014Q4

REPORT INFORMATION
  Report Type: Other
  Country: IT (occurrence: IT)
  Receive Date: 20140801
  Receipt Date: 20141110
  Transmission Date: 20150528
  Serious: Yes (Hospitalization)
  Sender: FDA-Public Use
  Company Number: IT-MYLAN-2014S1017831

PATIENT

DRUGS (3)
  1. DIFMETRE [Suspect]
     Active Substance: CAFFEINE\INDOMETHACIN\PROCHLORPERAZINE MALEATE
     Indication: INTENTIONAL SELF-INJURY
     Dosage: 1 DF,TOTAL
     Route: 048
     Dates: start: 20140405, end: 20140405
  2. PROTIADEN [Suspect]
     Active Substance: DOTHIEPIN HYDROCHLORIDE
     Indication: INTENTIONAL SELF-INJURY
     Dosage: 1 DF,TOTAL
     Route: 048
     Dates: start: 20140405, end: 20140405
  3. ALPRAZOLAM. [Suspect]
     Active Substance: ALPRAZOLAM
     Indication: INTENTIONAL SELF-INJURY
     Dosage: 1 DF,TOTAL
     Route: 048
     Dates: start: 20140405, end: 20140405

REACTIONS (2)
  - Drug abuse [Recovering/Resolving]
  - Depressed level of consciousness [Recovering/Resolving]

NARRATIVE: CASE EVENT DATE: 20140405
